FAERS Safety Report 6555847-2 (Version None)
Quarter: 2010Q1

REPORT INFORMATION
  Report Type: 
  Country: None (occurrence: None)
  Receive Date: 20100128
  Receipt Date: 20100122
  Transmission Date: 20100710
  Serious: Yes (Other)
  Sender: FDA-Public Use
  Company Number: OM-ROXANE LABORATORIES, INC.-2010-RO-00092RO

PATIENT
  Age: 9 Year
  Sex: Female

DRUGS (6)
  1. METHOTREXATE [Suspect]
     Indication: ARTHRITIS
     Route: 048
  2. METHOTREXATE [Suspect]
     Route: 048
  3. METHOTREXATE [Suspect]
     Route: 058
  4. NAPROXEN [Suspect]
     Indication: ARTHRITIS
  5. PREDNISONE TAB [Suspect]
     Indication: ARTHRITIS
  6. PREDNISONE TAB [Suspect]

REACTIONS (2)
  - ARTHRITIS [None]
  - RHEUMATOID NODULE [None]
